FAERS Safety Report 8050300-1 (Version None)
Quarter: 2012Q1

REPORT INFORMATION
  Report Type: 
  Country: None (occurrence: None)
  Receive Date: 20120111
  Receipt Date: 20100830
  Transmission Date: 20120608
  Serious: No
  Sender: FDA-Public Use
  Company Number: 2010-04633

PATIENT

DRUGS (1)
  1. TUBERSOL [Suspect]
     Indication: TUBERCULIN TEST
     Dosage: I.D.
     Route: 023

REACTIONS (3)
  - INCORRECT ROUTE OF DRUG ADMINISTRATION [None]
  - INFECTION [None]
  - CELLULITIS [None]
